FAERS Safety Report 23554378 (Version 2)
Quarter: 2024Q1

REPORT INFORMATION
  Report Type: Spontaneous
  Country: CN (occurrence: CN)
  Receive Date: 20240222
  Receipt Date: 20240301
  Transmission Date: 20240410
  Serious: Yes (Hospitalization)
  Sender: FDA-Public Use
  Company Number: CN-PFIZER INC-PV202400023794

PATIENT
  Age: 2 Year
  Sex: Male
  Weight: 13.65 kg

DRUGS (2)
  1. METHOTREXATE SODIUM [Suspect]
     Active Substance: METHOTREXATE SODIUM
     Indication: Acute lymphocytic leukaemia
     Dosage: CONTINUOUS 24 HOURS, 10% OF TOTAL FOR FIRST 0.5 HOURS, 90% OF TOTAL FOR NEXT 23.5 HOURS
     Route: 041
     Dates: start: 20240208, end: 20240209
  2. MERCAPTOPURINE [Concomitant]
     Active Substance: MERCAPTOPURINE
     Indication: Acute lymphocytic leukaemia
     Dosage: 12.5 MG, 1X/DAY
     Route: 048

REACTIONS (3)
  - Oral mucosa erosion [Recovered/Resolved]
  - Trismus [Recovering/Resolving]
  - Oral mucosal scab [Recovered/Resolved]

NARRATIVE: CASE EVENT DATE: 20240212
